FAERS Safety Report 10378321 (Version 1)
Quarter: 2014Q3

REPORT INFORMATION
  Report Type: Spontaneous
  Country: US (occurrence: US)
  Receive Date: 20140812
  Receipt Date: 20140812
  Transmission Date: 20150326
  Serious: Yes (Hospitalization, Other)
  Sender: FDA-Public Use
  Company Number: US-PFIZER INC-2014223034

PATIENT
  Age: 32 Year
  Sex: Female
  Weight: 52.2 kg

DRUGS (2)
  1. EFFEXOR XR [Suspect]
     Active Substance: VENLAFAXINE HYDROCHLORIDE
     Dosage: 150 MG, DAILY
     Dates: start: 2014, end: 2014
  2. EFFEXOR XR [Suspect]
     Active Substance: VENLAFAXINE HYDROCHLORIDE
     Indication: POST-TRAUMATIC STRESS DISORDER
     Dosage: 75 MG, UNK
     Dates: start: 201406, end: 2014

REACTIONS (16)
  - Rash [Unknown]
  - Anger [Unknown]
  - Anxiety [Unknown]
  - Menstrual disorder [Recovered/Resolved]
  - Suicidal ideation [Recovered/Resolved]
  - Libido decreased [Recovered/Resolved]
  - Hyperhidrosis [Unknown]
  - Panic attack [Unknown]
  - Crying [Unknown]
  - Heart rate irregular [Unknown]
  - Convulsion [Unknown]
  - Mental disorder [Unknown]
  - Tremor [Unknown]
  - Decreased appetite [Unknown]
  - Nightmare [Recovered/Resolved]
  - Drug withdrawal syndrome [Unknown]

NARRATIVE: CASE EVENT DATE: 2014
